FAERS Safety Report 7419430 (Version 4)
Quarter: 2013Q4

REPORT INFORMATION
  Report Type: Spontaneous
  Country: US (occurrence: US)
  Receive Date: 20100615
  Receipt Date: 20131206
  Transmission Date: 20140711
  Serious: Yes (Hospitalization, Other)
  Sender: FDA-Public Use
  Company Number: US-BAYER-201024556NA

PATIENT
  Age: 31 Year
  Sex: Female
  Weight: 70.3 kg

DRUGS (9)
  1. YASMIN [Suspect]
     Indication: ORAL CONTRACEPTION
     Route: 048
     Dates: start: 2003, end: 20080615
  2. YAZ [Suspect]
     Indication: ORAL CONTRACEPTION
     Route: 048
     Dates: start: 2008, end: 20080815
  3. OCELLA [Suspect]
     Indication: ORAL CONTRACEPTION
     Route: 048
     Dates: start: 200808, end: 20090515
  4. ADDERALL [Concomitant]
     Indication: ATTENTION DEFICIT/HYPERACTIVITY DISORDER
     Dosage: 30 MG, QD
     Route: 048
  5. LAMICTAL [Concomitant]
     Indication: MOOD SWINGS
     Dosage: 100 MG, UNK
     Route: 048
     Dates: start: 2006
  6. PHENTERMINE [Concomitant]
     Dosage: 37.5 MG, UNK
  7. WELLBUTRIN [Concomitant]
     Dosage: 300 MG, UNK
  8. FLUCONAZOLE [Concomitant]
     Dosage: 150 MG, UNK
  9. CLONAZEPAM [Concomitant]
     Dosage: 1 MG, UNK

REACTIONS (5)
  - Biliary colic [Unknown]
  - Cholecystitis chronic [None]
  - Abdominal pain upper [None]
  - Nausea [None]
  - Decreased appetite [None]
